FAERS Safety Report 4967447-6 (Version None)
Quarter: 2006Q2

REPORT INFORMATION
  Report Type: 
  Country: None (occurrence: None)
  Receive Date: 20060410
  Receipt Date: 20050404
  Transmission Date: 20061013
  Serious: Yes (Other)
  Sender: FDA-Public Use
  Company Number: PHNU2005DE01510

PATIENT
  Sex: Female
  Weight: 52 kg

DRUGS (8)
  1. PREDNISOLONE [Concomitant]
     Dosage: 5 MG, QD
     Route: 065
  2. THYRONAJOD [Concomitant]
     Route: 065
  3. CALCIUM GLUCONATE [Concomitant]
     Route: 065
  4. VITAMIN D [Concomitant]
     Route: 065
  5. ZOMETA [Suspect]
     Indication: OSTEOPOROSIS
     Dates: start: 20030201, end: 20040901
  6. CORTISONE ACETATE TAB [Concomitant]
     Route: 065
  7. SULFASALAZINE [Concomitant]
     Dosage: 2 DF, BID
     Route: 065
  8. MOBIC [Concomitant]
     Dosage: 15 MG, QD
     Route: 065

REACTIONS (3)
  - BONE DEVELOPMENT ABNORMAL [None]
  - IMPAIRED HEALING [None]
  - OSTEONECROSIS [None]
